FAERS Safety Report 11664876 (Version 1)
Quarter: 2015Q4

REPORT INFORMATION
  Report Type: Spontaneous
  Country: US (occurrence: None)
  Receive Date: 20151026
  Receipt Date: 20151026
  Transmission Date: 20160304
  Serious: Yes (Life-Threatening, Hospitalization)
  Sender: FDA-Public Use
  Company Number: None

PATIENT
  Age: 65 Year
  Sex: Male
  Weight: 81.1 kg

DRUGS (1)
  1. CEPHALEXIN. [Suspect]
     Active Substance: CEPHALEXIN
     Dosage: 500 MG TID PO?~06/05/2014 THRU ~06/10/2014
     Route: 048
     Dates: start: 20140605, end: 20140610

REACTIONS (4)
  - Leukopenia [None]
  - Agranulocytosis [None]
  - Bone marrow failure [None]
  - Neutropenia [None]

NARRATIVE: CASE EVENT DATE: 20140610
